FAERS Safety Report 16267836 (Version 1)
Quarter: 2019Q2

REPORT INFORMATION
  Report Type: Report from Study
  Country: ES (occurrence: ES)
  Receive Date: 20190503
  Receipt Date: 20190503
  Transmission Date: 20190711
  Serious: Yes (Hospitalization)
  Sender: FDA-Public Use
  Company Number: ES-TEVA-2019-ES-1044199

PATIENT
  Age: 71 Year
  Sex: Male

DRUGS (6)
  1. ENALAPRIL MALEATO (2142MA) [Concomitant]
     Active Substance: ENALAPRIL MALEATE
     Indication: HYPERTENSION
     Route: 048
     Dates: start: 2013
  2. OXYNORM 20 MG CAPSULAS DURAS , 28 C?PSULAS [Interacting]
     Active Substance: OXYCODONE HYDROCHLORIDE
     Indication: LUMBAR RADICULOPATHY
     Route: 048
     Dates: start: 201708
  3. SIMVASTATINA (1023A) [Concomitant]
     Active Substance: SIMVASTATIN
     Indication: DYSLIPIDAEMIA
     Route: 048
     Dates: start: 2010
  4. GABAPENTINA (2641A) [Concomitant]
     Active Substance: GABAPENTIN
     Indication: LUMBAR RADICULOPATHY
     Route: 048
     Dates: start: 20181223, end: 20181223
  5. GABAPENTINA (2641A) [Suspect]
     Active Substance: GABAPENTIN
     Indication: LUMBAR RADICULOPATHY
     Route: 048
     Dates: start: 20181114, end: 20181222
  6. TARGIN 40 MG/20 MG COMPRIMIDOS DE LIBERACION PROLONGADA , 56 COMPRIMID [Interacting]
     Active Substance: NALOXONE HYDROCHLORIDE\OXYCODONE HYDROCHLORIDE
     Indication: LUMBAR RADICULOPATHY
     Route: 048
     Dates: start: 201708

REACTIONS (2)
  - Drug interaction [Unknown]
  - Mental status changes [Recovered/Resolved]

NARRATIVE: CASE EVENT DATE: 20181223
